FAERS Safety Report 9267405 (Version 1)
Quarter: 2013Q2

REPORT INFORMATION
  Report Type: Spontaneous
  Country: US (occurrence: US)
  Receive Date: 20130502
  Receipt Date: 20130502
  Transmission Date: 20140414
  Serious: No
  Sender: FDA-Public Use
  Company Number: US-PFIZER INC-2013137539

PATIENT
  Age: 55 Year
  Sex: Female
  Weight: 117.91 kg

DRUGS (9)
  1. LYRICA [Suspect]
     Indication: FIBROMYALGIA
     Dosage: UNK
     Route: 048
     Dates: end: 201211
  2. LYRICA [Suspect]
     Indication: NEURALGIA
  3. LYRICA [Suspect]
     Indication: DIABETIC NEUROPATHY
  4. METFORMIN [Concomitant]
     Indication: DIABETES MELLITUS
     Dosage: UNK
  5. LANTUS [Concomitant]
     Dosage: UNK
  6. GLIPIZIDE [Concomitant]
     Dosage: UNK
  7. TEKTURNA [Concomitant]
     Dosage: UNK
  8. ARMOUR THYROID [Concomitant]
     Indication: THYROID DISORDER
     Dosage: UNK
  9. CAPITROL [Concomitant]
     Dosage: UNK

REACTIONS (2)
  - Pain [Unknown]
  - Burning sensation [Unknown]
